FAERS Safety Report 9807369 (Version 1)
Quarter: 2014Q1

REPORT INFORMATION
  Report Type: Spontaneous
  Country: US (occurrence: US)
  Receive Date: 20140110
  Receipt Date: 20140110
  Transmission Date: 20141002
  Serious: No
  Sender: FDA-Public Use
  Company Number: US-009507513-1312USA006047

PATIENT
  Age: 27 Year
  Sex: Female

DRUGS (2)
  1. TICE BCG LIVE [Suspect]
     Indication: PROPHYLAXIS
     Dosage: UNK
     Dates: start: 20131211, end: 20131211
  2. LISINOPRIL [Concomitant]
     Dosage: UNK

REACTIONS (4)
  - Injection site swelling [Recovering/Resolving]
  - Product quality issue [Unknown]
  - Accidental exposure to product [Unknown]
  - Injury associated with device [Unknown]
